FAERS Safety Report 11213161 (Version 1)
Quarter: 2015Q2

REPORT INFORMATION
  Report Type: Spontaneous
  Country: US (occurrence: US)
  Receive Date: 20150623
  Receipt Date: 20150623
  Transmission Date: 20150821
  Serious: No
  Sender: FDA-Public Use
  Company Number: US-TARO-2015TAR00389

PATIENT
  Age: 2 Year
  Sex: Male
  Weight: 12.7 kg

DRUGS (3)
  1. UNSPECIFIED VITAMIN [Concomitant]
     Dosage: UNK, 1X/DAY
  2. CETIRIZINE HCL [Suspect]
     Active Substance: CETIRIZINE HYDROCHLORIDE
     Indication: NASAL CONGESTION
     Dosage: ^1 MG^, 1X/DAY
     Route: 048
     Dates: start: 20150429, end: 20150430
  3. CETIRIZINE HCL [Suspect]
     Active Substance: CETIRIZINE HYDROCHLORIDE
     Indication: RHINORRHOEA

REACTIONS (1)
  - Pollakiuria [Unknown]

NARRATIVE: CASE EVENT DATE: 20150430
